FAERS Safety Report 16177160 (Version 1)
Quarter: 2019Q2

REPORT INFORMATION
  Report Type: Report from Study
  Country: US (occurrence: US)
  Receive Date: 20190410
  Receipt Date: 20190410
  Transmission Date: 20190711
  Serious: Yes (Death)
  Sender: FDA-Public Use
  Company Number: US-ELI_LILLY_AND_COMPANY-US201904002947

PATIENT

DRUGS (5)
  1. GEMCITABINE HYDROCHLORIDE. [Suspect]
     Active Substance: GEMCITABINE HYDROCHLORIDE
     Indication: NEOPLASM
     Dosage: 1000 MG/M2, CYCLICAL
     Route: 065
  2. DASATINIB. [Concomitant]
     Active Substance: DASATINIB
     Indication: NEOPLASM
     Dosage: 50 MG, BID
     Route: 048
  3. CETUXIMAB. [Suspect]
     Active Substance: CETUXIMAB
     Indication: NEOPLASM
     Dosage: 400 MG/M2, LOADING DOSE
     Route: 065
  4. DASATINIB. [Concomitant]
     Active Substance: DASATINIB
     Dosage: 70 MG, BID
     Route: 048
  5. CETUXIMAB. [Suspect]
     Active Substance: CETUXIMAB
     Dosage: 250 MG/M2, CYCLICAL
     Route: 065

REACTIONS (1)
  - Pneumonitis [Fatal]
